FAERS Safety Report 15859050 (Version 3)
Quarter: 2019Q3

REPORT INFORMATION
  Report Type: Spontaneous
  Country: US (occurrence: US)
  Receive Date: 20190123
  Receipt Date: 20190708
  Transmission Date: 20191004
  Serious: No
  Sender: FDA-Public Use
  Company Number: US-SA-2019SA014993

PATIENT
  Age: 48 Year
  Sex: Female

DRUGS (1)
  1. DUPIXENT [Suspect]
     Active Substance: DUPILUMAB
     Indication: DERMATITIS ATOPIC
     Dosage: 300 MG, QOW
     Route: 058
     Dates: start: 20181011

REACTIONS (7)
  - Dry mouth [Unknown]
  - Eye pruritus [Unknown]
  - Dry eye [Unknown]
  - Oral herpes [Unknown]
  - Injection site pruritus [Unknown]
  - Blepharitis [Unknown]
  - Injection site rash [Unknown]
